FAERS Safety Report 8004126-5 (Version None)
Quarter: 2011Q4

REPORT INFORMATION
  Report Type: 
  Country: None (occurrence: None)
  Receive Date: 20111222
  Receipt Date: 20111213
  Transmission Date: 20120403
  Serious: Yes (Hospitalization)
  Sender: FDA-Public Use
  Company Number: US-ASTRAZENECA-2011SE75739

PATIENT
  Age: 60 Year
  Sex: Female

DRUGS (2)
  1. SYMBICORT [Suspect]
     Dosage: TWO PUFFS TWICE DAILY
     Route: 055
  2. SYMBICORT [Suspect]
     Dosage: ONE PUFF DAILY
     Route: 055

REACTIONS (4)
  - MUSCLE TIGHTNESS [None]
  - BRAIN HYPOXIA [None]
  - INCORRECT DOSE ADMINISTERED [None]
  - BACK PAIN [None]
